FAERS Safety Report 7480862-4 (Version None)
Quarter: 2011Q2

REPORT INFORMATION
  Report Type: 
  Country: None (occurrence: None)
  Receive Date: 20110516
  Receipt Date: 20110512
  Transmission Date: 20111010
  Serious: Yes (Death)
  Sender: FDA-Public Use
  Company Number: PHHY2011US40485

PATIENT
  Sex: Male

DRUGS (15)
  1. COUMADIN [Concomitant]
  2. ECHINACEA [Concomitant]
  3. COSOPT [Concomitant]
  4. ELIGARD [Concomitant]
  5. VITAMIN B6 [Concomitant]
  6. UROXATRAL [Concomitant]
  7. ESTER-C [Concomitant]
  8. EXJADE [Suspect]
     Dosage: 1500 MG, ONCE/SINGLE
     Route: 048
  9. TRAVATAN [Concomitant]
  10. COQ10 [Concomitant]
  11. ZOCOR [Concomitant]
  12. FOLIC ACID [Concomitant]
  13. LOVAZA [Concomitant]
  14. PANTOPRAZOLE [Concomitant]
  15. ARANESP [Concomitant]

REACTIONS (1)
  - DEATH [None]
